FAERS Safety Report 7260307-X (Version None)
Quarter: 2011Q1

REPORT INFORMATION
  Report Type: 
  Country: None (occurrence: None)
  Receive Date: 20110130
  Receipt Date: 20100908
  Transmission Date: 20110831
  Serious: No
  Sender: FDA-Public Use
  Company Number: US-ABBOTT-10P-163-0670189-00

PATIENT
  Sex: Female

DRUGS (4)
  1. HUMIRA [Suspect]
     Dates: start: 20100615, end: 20100801
  2. HUMIRA [Suspect]
     Indication: CROHN'S DISEASE
     Dosage: 160MG LOADING DOSE
     Route: 058
     Dates: start: 20100525, end: 20100525
  3. HUMIRA [Suspect]
     Dates: start: 20100801
  4. HUMIRA [Suspect]
     Dosage: 80MG LOADING DOSE
     Route: 058
     Dates: start: 20100608, end: 20100608

REACTIONS (1)
  - PRURITUS GENERALISED [None]
